FAERS Safety Report 9701094 (Version 4)
Quarter: 2014Q1

REPORT INFORMATION
  Report Type: Spontaneous
  Country: NO (occurrence: NO)
  Receive Date: 20131121
  Receipt Date: 20140313
  Transmission Date: 20141002
  Serious: No
  Sender: FDA-Public Use
  Company Number: NO-JNJFOC-20131108551

PATIENT
  Age: 22 Year
  Sex: Male

DRUGS (3)
  1. SIMPONI [Suspect]
     Indication: SACROILIITIS
     Route: 058
     Dates: start: 20130813, end: 20131013
  2. SIMPONI [Suspect]
     Indication: RHEUMATIC DISORDER
     Route: 058
     Dates: start: 20130813, end: 20131013
  3. VOLTAREN [Concomitant]
     Dosage: WHEN??NEEDED
     Route: 065

REACTIONS (5)
  - Palpitations [Recovered/Resolved]
  - Heart rate increased [Recovered/Resolved]
  - Off label use [Unknown]
  - Malaise [Unknown]
  - Dizziness [Unknown]
